FAERS Safety Report 23445316 (Version 1)
Quarter: 2024Q1

REPORT INFORMATION
  Report Type: Report from Study
  Country: CA (occurrence: CA)
  Receive Date: 20240126
  Receipt Date: 20240126
  Transmission Date: 20240409
  Serious: Yes (Other)
  Sender: FDA-Public Use
  Company Number: CA-JNJFOC-20210233860

PATIENT
  Age: 9 Year
  Sex: Male
  Weight: 25 kg

DRUGS (2)
  1. REMICADE [Suspect]
     Active Substance: INFLIXIMAB
     Indication: Colitis ulcerative
     Route: 041
     Dates: start: 20180410
  2. REMICADE [Suspect]
     Active Substance: INFLIXIMAB
     Route: 041
     Dates: start: 20220117

REACTIONS (2)
  - Colitis ulcerative [Unknown]
  - Drug level decreased [Unknown]
